FAERS Safety Report 16535801 (Version 1)
Quarter: 2019Q3

REPORT INFORMATION
  Report Type: Spontaneous
  Country: US (occurrence: US)
  Receive Date: 20190705
  Receipt Date: 20190705
  Transmission Date: 20191004
  Serious: No
  Sender: FDA-Public Use
  Company Number: US-GLAXOSMITHKLINE-US2019AMR118158

PATIENT
  Age: 45 Year
  Sex: Female

DRUGS (1)
  1. TRANSDERM SCOP [Suspect]
     Active Substance: SCOPOLAMINE
     Indication: MOTION SICKNESS
     Dosage: UNK

REACTIONS (12)
  - Dizziness [Unknown]
  - Dry mouth [Unknown]
  - Disorientation [Unknown]
  - Condition aggravated [Unknown]
  - Chest discomfort [Unknown]
  - Pain [Unknown]
  - Vision blurred [Recovered/Resolved]
  - Discomfort [Unknown]
  - Oral discomfort [Unknown]
  - Impaired driving ability [Unknown]
  - Nausea [Recovered/Resolved]
  - Hypoaesthesia [Unknown]
